FAERS Safety Report 14694076 (Version 3)
Quarter: 2018Q2

REPORT INFORMATION
  Report Type: Spontaneous
  Country: JP (occurrence: JP)
  Receive Date: 20180329
  Receipt Date: 20180424
  Transmission Date: 20180711
  Serious: Yes (Hospitalization, Other)
  Sender: FDA-Public Use
  Company Number: JP-JNJFOC-20180338046

PATIENT
  Age: 70 Year
  Sex: Male

DRUGS (11)
  1. XARELTO [Suspect]
     Active Substance: RIVAROXABAN
     Indication: EMBOLIC STROKE
     Route: 048
     Dates: start: 20130624, end: 20140720
  2. DUTASTERIDE. [Concomitant]
     Active Substance: DUTASTERIDE
     Indication: BENIGN PROSTATIC HYPERPLASIA
     Dosage: 0.5 MG, QD(AFTER BREAKFAST
     Route: 065
  3. MAINTATE [Concomitant]
     Active Substance: BISOPROLOL FUMARATE
     Indication: ESSENTIAL HYPERTENSION
     Dosage: 5 MG, QD(AFTER BREAKFAST)
     Route: 065
  4. XARELTO [Suspect]
     Active Substance: RIVAROXABAN
     Indication: ATRIAL FIBRILLATION
     Route: 048
     Dates: start: 20130624, end: 20140720
  5. TAMSULOSIN HYDROCHLORIDE. [Concomitant]
     Active Substance: TAMSULOSIN HYDROCHLORIDE
     Indication: DYSURIA
     Dosage: 0.2 MG, QD(AFTER BREAKFAST)
     Route: 065
  6. XARELTO [Suspect]
     Active Substance: RIVAROXABAN
     Indication: ATRIAL FIBRILLATION
     Route: 048
     Dates: start: 20140724, end: 20180216
  7. XARELTO [Suspect]
     Active Substance: RIVAROXABAN
     Indication: ATRIAL FIBRILLATION
     Route: 048
  8. TAMSULOSIN HYDROCHLORIDE. [Concomitant]
     Active Substance: TAMSULOSIN HYDROCHLORIDE
     Indication: BENIGN PROSTATIC HYPERPLASIA
     Dosage: 0.2 MG, QD(AFTER BREAKFAST)
     Route: 065
  9. XARELTO [Suspect]
     Active Substance: RIVAROXABAN
     Indication: EMBOLIC STROKE
     Route: 048
     Dates: start: 20140724, end: 20180216
  10. XARELTO [Suspect]
     Active Substance: RIVAROXABAN
     Indication: EMBOLIC STROKE
     Route: 048
  11. MAINTATE [Concomitant]
     Active Substance: BISOPROLOL FUMARATE
     Indication: ATRIAL FIBRILLATION
     Dosage: 5 MG, QD(AFTER BREAKFAST)
     Route: 065

REACTIONS (6)
  - Cerebral infarction [Unknown]
  - Off label use [Unknown]
  - Epilepsy [Unknown]
  - Drug effect incomplete [Unknown]
  - Cerebral artery embolism [Recovered/Resolved with Sequelae]
  - Cerebral infarction [Unknown]

NARRATIVE: CASE EVENT DATE: 20140720
